FAERS Safety Report 8546588-0 (Version None)
Quarter: 2012Q3

REPORT INFORMATION
  Report Type: 
  Country: None (occurrence: None)
  Receive Date: 20120727
  Receipt Date: 20120118
  Transmission Date: 20120928
  Serious: No
  Sender: FDA-Public Use
  Company Number: US-ASTRAZENECA-2011SE78891

PATIENT
  Age: 56 Year
  Sex: Female

DRUGS (1)
  1. SEROQUEL [Suspect]
     Indication: INSOMNIA
     Route: 048
     Dates: start: 20110101

REACTIONS (10)
  - MIDDLE INSOMNIA [None]
  - DISSOCIATION [None]
  - ILL-DEFINED DISORDER [None]
  - DISTURBANCE IN ATTENTION [None]
  - DRUG DOSE OMISSION [None]
  - DEPRESSION [None]
  - OFF LABEL USE [None]
  - INSOMNIA [None]
  - ANXIETY [None]
  - SLEEP DISORDER [None]
